FAERS Safety Report 8487930-9 (Version None)
Quarter: 2012Q2

REPORT INFORMATION
  Report Type: 
  Country: None (occurrence: None)
  Receive Date: 20120402
  Receipt Date: 20100805
  Transmission Date: 20120825
  Serious: Yes (Other)
  Sender: FDA-Public Use
  Company Number: PHHY2010US51853

PATIENT
  Age: 71 Year
  Sex: Male

DRUGS (2)
  1. LIPITOR [Concomitant]
  2. EXFORGE [Suspect]
     Dosage: 160/5 MG, ORAL 160/10 MG, ORAL
     Route: 048

REACTIONS (3)
  - HEADACHE [None]
  - DRUG INEFFECTIVE [None]
  - HYPERTENSION [None]
